FAERS Safety Report 4269698-5 (Version None)
Quarter: 2004Q1

REPORT INFORMATION
  Report Type: 
  Country: None (occurrence: None)
  Receive Date: 20040112
  Receipt Date: 20040108
  Transmission Date: 20041129
  Serious: Yes (Death)
  Sender: FDA-Public Use
  Company Number: IT-SHR-03-014297

PATIENT
  Age: 55 Year
  Sex: Male

DRUGS (14)
  1. FLUDARA [Suspect]
     Indication: NON-HODGKIN'S LYMPHOMA
     Dosage: 6 CYCLES
     Dates: start: 19980101
  2. MITOXANTRONE [Suspect]
     Indication: NON-HODGKIN'S LYMPHOMA
     Dosage: 6 CYCLES
     Dates: start: 19980101
  3. DEXAMETHASONE [Suspect]
     Indication: NON-HODGKIN'S LYMPHOMA
     Dosage: 6 CYCLES
     Dates: start: 19980101
  4. ETOPOSIDE [Suspect]
     Dosage: 1600 MG/M2
     Dates: start: 19981001, end: 19981001
  5. CARMUSTINE [Suspect]
     Indication: AUTOLOGOUS BONE MARROW TRANSPLANTATION THERAPY
     Dates: start: 19990301, end: 19990301
  6. ETOPOSIDE [Suspect]
     Indication: AUTOLOGOUS BONE MARROW TRANSPLANTATION THERAPY
     Dates: start: 19990301, end: 19990301
  7. CYTARABINE [Suspect]
     Indication: AUTOLOGOUS BONE MARROW TRANSPLANTATION THERAPY
     Dates: start: 19990301, end: 19990301
  8. MELPHALAN(MELPHALAN) [Suspect]
     Indication: AUTOLOGOUS BONE MARROW TRANSPLANTATION THERAPY
     Dates: start: 19990301, end: 19990301
  9. CIPROFLOXACIN [Concomitant]
  10. ITRACONAZOLE [Concomitant]
  11. ACYCLOVIR [Concomitant]
  12. PLATELETS [Concomitant]
  13. RED BLOOD CELLS [Concomitant]
  14. NEUPOGEN [Concomitant]

REACTIONS (10)
  - BIOPSY SKIN ABNORMAL [None]
  - BRONCHOPULMONARY ASPERGILLOSIS [None]
  - CEREBRAL ASPERGILLOSIS [None]
  - CYTOMEGALOVIRUS INFECTION [None]
  - FEBRILE NEUTROPENIA [None]
  - GRAFT VERSUS HOST DISEASE [None]
  - HAEMOGLOBIN DECREASED [None]
  - IMMUNE SYSTEM DISORDER [None]
  - LYMPHOCYTIC INFILTRATION [None]
  - NECROSIS [None]
